FAERS Safety Report 24295787 (Version 1)
Quarter: 2024Q3

REPORT INFORMATION
  Report Type: Report from Study
  Country: US (occurrence: US)
  Receive Date: 20240908
  Receipt Date: 20240908
  Transmission Date: 20241017
  Serious: Yes (Hospitalization, Other)
  Sender: ABBVIE
  Company Number: US-ABBVIE-5703270

PATIENT
  Sex: Female

DRUGS (1)
  1. HUMIRA [Suspect]
     Active Substance: ADALIMUMAB
     Indication: Hidradenitis
     Dosage: HUMIRA CITRATE FREE PEN, FORM STRENGTH: 40 MILLIGRAM
     Route: 058
     Dates: start: 20220819

REACTIONS (1)
  - Spinal ligament ossification [Recovering/Resolving]
